FAERS Safety Report 5323180-2 (Version None)
Quarter: 2007Q2

REPORT INFORMATION
  Report Type: 
  Country: None (occurrence: None)
  Receive Date: 20070220
  Receipt Date: 20061116
  Transmission Date: 20071010
  Serious: No
  Sender: FDA-Public Use
  Company Number: WAES 0611USA05122

PATIENT
  Age: 50 Year
  Sex: Female

DRUGS (8)
  1. JANUVIA [Suspect]
     Indication: HYPERGLYCAEMIA
     Dosage: 100 MG/DAILY/PO
     Route: 048
     Dates: start: 20061031, end: 20061109
  2. AMBIEN [Concomitant]
  3. CYMBALTA [Concomitant]
  4. GLUCOVANCE [Concomitant]
  5. VYTORIN [Concomitant]
  6. ZYRTEC [Concomitant]
  7. ALLOPURINOL [Concomitant]
  8. LISINOPRIL [Concomitant]

REACTIONS (1)
  - BLOOD GLUCOSE INCREASED [None]
